FAERS Safety Report 17367831 (Version 3)
Quarter: 2020Q1

REPORT INFORMATION
  Report Type: Report from Study
  Country: AR (occurrence: AR)
  Receive Date: 20200204
  Receipt Date: 20200303
  Transmission Date: 20200409
  Serious: Yes (Death, Hospitalization, Other)
  Sender: FDA-Public Use
  Company Number: AR-ASTRAZENECA-2017SF00374

PATIENT
  Age: 29356 Day
  Sex: Female

DRUGS (5)
  1. LYNPARZA [Suspect]
     Active Substance: OLAPARIB
     Indication: OVARIAN CANCER
     Route: 048
     Dates: start: 20170925
  2. LYNPARZA [Suspect]
     Active Substance: OLAPARIB
     Indication: OVARIAN CANCER
     Route: 048
     Dates: end: 20200101
  3. FERROUS IRON AND FOLIC ACID [Concomitant]
  4. LYNPARZA [Suspect]
     Active Substance: OLAPARIB
     Indication: OVARIAN CANCER
     Route: 048
     Dates: start: 20170615, end: 20170925
  5. ATENOLOL. [Concomitant]
     Active Substance: ATENOLOL
     Indication: HYPERTENSION

REACTIONS (15)
  - General physical health deterioration [Fatal]
  - Blood sodium decreased [Unknown]
  - Dizziness [Unknown]
  - Neuralgia [Unknown]
  - Bronchitis [Recovered/Resolved]
  - Pleural effusion [Unknown]
  - Back pain [Unknown]
  - Anaemia [Recovered/Resolved]
  - Dehydration [Unknown]
  - Condition aggravated [Unknown]
  - Asthenia [Unknown]
  - Gait disturbance [Unknown]
  - Arrhythmia [Unknown]
  - Pain [Unknown]
  - Decreased appetite [Unknown]

NARRATIVE: CASE EVENT DATE: 20170923
